FAERS Safety Report 18446908 (Version 4)
Quarter: 2021Q2

REPORT INFORMATION
  Report Type: Spontaneous
  Country: US (occurrence: US)
  Receive Date: 20201030
  Receipt Date: 20210412
  Transmission Date: 20210717
  Serious: Yes (Other)
  Sender: FDA-Public Use
  Company Number: US-PFIZER INC-2020420450

PATIENT
  Age: 53 Year
  Sex: Female

DRUGS (4)
  1. XELJANZ XR [Suspect]
     Active Substance: TOFACITINIB CITRATE
     Dosage: UNK
     Dates: start: 20201028
  2. XELJANZ XR [Suspect]
     Active Substance: TOFACITINIB CITRATE
     Dosage: UNK
     Dates: start: 20201001
  3. XELJANZ XR [Suspect]
     Active Substance: TOFACITINIB CITRATE
     Indication: RHEUMATOID ARTHRITIS
     Dosage: 11 MG
     Dates: start: 20200914
  4. XELJANZ XR [Suspect]
     Active Substance: TOFACITINIB CITRATE
     Dosage: 11 MG
     Dates: start: 20200930

REACTIONS (12)
  - Oedema peripheral [Unknown]
  - Nausea [Unknown]
  - Dizziness [Unknown]
  - Tuberculosis [Unknown]
  - Pain [Unknown]
  - Feeling abnormal [Unknown]
  - Peripheral swelling [Unknown]
  - Ear disorder [Unknown]
  - Drug ineffective [Unknown]
  - Condition aggravated [Unknown]
  - Product dose omission issue [Unknown]
  - Orthostatic hypertension [Unknown]

NARRATIVE: CASE EVENT DATE: 2020
